FAERS Safety Report 14752415 (Version 2)
Quarter: 2018Q2

REPORT INFORMATION
  Report Type: Spontaneous
  Country: US (occurrence: US)
  Receive Date: 20180412
  Receipt Date: 20180423
  Transmission Date: 20180711
  Serious: Yes (Other)
  Sender: FDA-Public Use
  Company Number: US-PFIZER INC-2018144975

PATIENT
  Age: 41 Year
  Sex: Female

DRUGS (2)
  1. MILRINONE [Suspect]
     Active Substance: MILRINONE
     Indication: CARDIOMYOPATHY
     Dosage: UNK
     Route: 042
  2. NOREPINEPHRINE. [Concomitant]
     Active Substance: NOREPINEPHRINE
     Dosage: UNK

REACTIONS (4)
  - Cardiomyopathy [Unknown]
  - Tachycardia [Unknown]
  - Hypotension [Unknown]
  - Condition aggravated [Unknown]
